FAERS Safety Report 25883934 (Version 2)
Quarter: 2025Q4

REPORT INFORMATION
  Report Type: Report from Study
  Country: CA (occurrence: CA)
  Receive Date: 20251006
  Receipt Date: 20251103
  Transmission Date: 20260117
  Serious: Yes (Hospitalization, Other)
  Sender: ABBVIE
  Company Number: CA-ABBVIE-6486011

PATIENT
  Age: 28 Year
  Sex: Female

DRUGS (1)
  1. RINVOQ [Suspect]
     Active Substance: UPADACITINIB
     Indication: Rheumatoid arthritis
     Dosage: FORM STRENGTH: 15 MILLIGRAM
     Route: 048
     Dates: start: 20250904

REACTIONS (13)
  - Mixed connective tissue disease [Unknown]
  - Brain natriuretic peptide increased [Unknown]
  - Myalgia [Unknown]
  - Painful respiration [Unknown]
  - Blood lactic acid abnormal [Recovering/Resolving]
  - Serum ferritin increased [Unknown]
  - Troponin increased [Unknown]
  - Myocarditis [Unknown]
  - Malaise [Unknown]
  - Inflammation [Not Recovered/Not Resolved]
  - Haemophagocytic lymphohistiocytosis [Unknown]
  - Systemic lupus erythematosus [Unknown]
  - Pulseless electrical activity [Unknown]

NARRATIVE: CASE EVENT DATE: 20250101
